FAERS Safety Report 5571297-X (Version None)
Quarter: 2007Q4

REPORT INFORMATION
  Report Type: 
  Country: None (occurrence: None)
  Receive Date: 20071221
  Receipt Date: 20070510
  Transmission Date: 20080405
  Serious: No
  Sender: FDA-Public Use
  Company Number: A0650817A

PATIENT
  Age: 52 Year
  Sex: Female

DRUGS (8)
  1. FLONASE [Suspect]
     Dosage: 2SPR PER DAY
     Route: 045
     Dates: start: 20070101, end: 20070201
  2. FLUTICASONE PROPIONATE [Suspect]
     Dosage: 2SPR PER DAY
     Route: 045
     Dates: start: 20070201
  3. ZYRTEC [Concomitant]
  4. ALLERGY INJECTION [Concomitant]
  5. UNKNOWN MEDICATION [Concomitant]
  6. ASTELIN [Concomitant]
  7. TOPROL-XL [Concomitant]
  8. SUDAFED 12 HOUR [Concomitant]

REACTIONS (3)
  - CONDITION AGGRAVATED [None]
  - RHINORRHOEA [None]
  - SINUSITIS [None]
